FAERS Safety Report 7124556-3 (Version None)
Quarter: 2010Q4

REPORT INFORMATION
  Report Type: 
  Country: None (occurrence: None)
  Receive Date: 20101129
  Receipt Date: 20101026
  Transmission Date: 20110411
  Serious: Yes (Death, Hospitalization, Other)
  Sender: FDA-Public Use
  Company Number: GB-AMGEN-US389567

PATIENT

DRUGS (12)
  1. ETANERCEPT [Suspect]
     Indication: RHEUMATOID ARTHRITIS
     Dosage: 25 MG, 2 TIMES/WK
     Route: 058
     Dates: start: 20030529
  2. METHOTREXATE [Concomitant]
     Dosage: UNKNOWN
     Dates: start: 20030529
  3. HYDROXYCHLOROQUINE SULFATE [Concomitant]
     Dosage: UNK UNK, UNK
  4. HYDROXYCHLOROQUINE SULFATE [Concomitant]
     Dosage: UNKNOWN
  5. FOLIC ACID [Concomitant]
     Dosage: UNK UNK, UNK
  6. FOLIC ACID [Concomitant]
     Dosage: UNKNOWN
  7. ALENDRONATE SODIUM [Concomitant]
     Dosage: UNK UNK, UNK
  8. SULFASALAZINE [Concomitant]
     Dosage: UNK UNK, UNK
  9. SULFASALAZINE [Concomitant]
     Dosage: UNKNOWN
  10. PREDNISOLONE [Concomitant]
     Dosage: UNK UNK, UNK
  11. PREDNISOLONE [Concomitant]
     Dosage: UNKNOWN
  12. FOSAMAX [Concomitant]
     Dosage: UNKNOWN

REACTIONS (7)
  - ATRIAL FIBRILLATION [None]
  - BRONCHIOLOALVEOLAR CARCINOMA [None]
  - EPISTAXIS [None]
  - LUNG SQUAMOUS CELL CARCINOMA STAGE I [None]
  - MYOCARDIAL ISCHAEMIA [None]
  - PNEUMONIA [None]
  - RESPIRATORY ARREST [None]
